FAERS Safety Report 24360817 (Version 5)
Quarter: 2025Q4

REPORT INFORMATION
  Report Type: Report from Study
  Country: CA (occurrence: None)
  Receive Date: 20240925
  Receipt Date: 20251103
  Transmission Date: 20260118
  Serious: Yes (Hospitalization, Disabling, Other)
  Sender: CHIESI
  Company Number: CA-CHIESI-2024CHF06204

PATIENT
  Age: 55 Year
  Sex: Male
  Weight: 74 kg

DRUGS (4)
  1. DEFERIPRONE [Suspect]
     Active Substance: DEFERIPRONE
     Indication: Superficial siderosis of central nervous system
     Dosage: 500 MILLIGRAM, QID
     Dates: start: 20160628, end: 202408
  2. DEFERIPRONE [Suspect]
     Active Substance: DEFERIPRONE
     Indication: Off label use
     Dosage: UNK
  3. DEFERIPRONE [Suspect]
     Active Substance: DEFERIPRONE
     Dosage: UNK
  4. MIRABEGRON [Concomitant]
     Active Substance: MIRABEGRON
     Indication: Product used for unknown indication
     Dosage: UNK

REACTIONS (26)
  - Deafness unilateral [Unknown]
  - Ear infection [Recovering/Resolving]
  - Bell^s palsy [Recovered/Resolved]
  - Loss of consciousness [Unknown]
  - Sepsis [Recovering/Resolving]
  - COVID-19 [Recovered/Resolved]
  - COVID-19 [Unknown]
  - Temperature regulation disorder [Unknown]
  - Mobility decreased [Unknown]
  - Hypophagia [Unknown]
  - Fungal infection [Unknown]
  - Miliaria [Unknown]
  - Rash [Unknown]
  - Blood iron decreased [Unknown]
  - Dyspnoea [Unknown]
  - Asthenia [Unknown]
  - Tinnitus [Unknown]
  - Asthenia [Unknown]
  - Dizziness [Unknown]
  - Hypotension [Unknown]
  - Fatigue [Unknown]
  - Infection [Unknown]
  - Asthenia [Unknown]
  - Off label use [Recovered/Resolved]
  - Off label use [Recovered/Resolved]
  - Product use issue [Not Recovered/Not Resolved]

NARRATIVE: CASE EVENT DATE: 20160628
